FAERS Safety Report 7137419-4 (Version None)
Quarter: 2010Q4

REPORT INFORMATION
  Report Type: 
  Country: None (occurrence: None)
  Receive Date: 20101119
  Receipt Date: 20090205
  Transmission Date: 20110411
  Serious: Yes (Death)
  Sender: FDA-Public Use
  Company Number: DSA_44256_2010

PATIENT
  Sex: Male

DRUGS (6)
  1. XENAZINE [Suspect]
     Indication: HUNTINGTON'S DISEASE
     Dosage: (25 MG TID ORAL)
     Route: 048
     Dates: start: 20081213
  2. SERTRALINE [Concomitant]
  3. SEROQUEL [Concomitant]
  4. CLONAZEPAM [Concomitant]
  5. VITAMIN TAB [Concomitant]
  6. LOVASTATIN [Concomitant]

REACTIONS (1)
  - DEATH [None]
